FAERS Safety Report 5390577-4 (Version None)
Quarter: 2007Q3

REPORT INFORMATION
  Report Type: 
  Country: None (occurrence: None)
  Receive Date: 20070718
  Receipt Date: 20070406
  Transmission Date: 20080115
  Serious: No
  Sender: FDA-Public Use
  Company Number: US-KINGPHARMUSA00001-K200700458

PATIENT

DRUGS (4)
  1. LEVOXYL [Suspect]
     Indication: HYPOTHYROIDISM
     Dosage: 75 MCG, QD
     Route: 048
     Dates: start: 20060801
  2. LEVOXYL [Suspect]
     Dosage: 50 MCG, QD
     Route: 048
  3. XALATAN [Concomitant]
     Indication: GLAUCOMA
     Route: 047
  4. TIMOLOL MALEATE [Concomitant]
     Indication: GLAUCOMA
     Route: 047

REACTIONS (4)
  - ABDOMINAL PAIN UPPER [None]
  - ERUCTATION [None]
  - INTESTINAL FUNCTIONAL DISORDER [None]
  - WEIGHT DECREASED [None]
